FAERS Safety Report 5870591-2 (Version None)
Quarter: 2008Q3

REPORT INFORMATION
  Report Type: 
  Country: None (occurrence: None)
  Receive Date: 20080904
  Receipt Date: 20080829
  Transmission Date: 20090109
  Serious: Yes (Hospitalization)
  Sender: FDA-Public Use
  Company Number: A0745223A

PATIENT
  Age: 55 Year
  Sex: Male
  Weight: 86.4 kg

DRUGS (10)
  1. AVANDIA [Suspect]
     Dosage: 8MG PER DAY
     Route: 048
     Dates: start: 20030201, end: 20070601
  2. METFORMIN HCL [Concomitant]
     Dates: start: 20000101
  3. LENTE [Concomitant]
     Dates: start: 20040101
  4. GLUCOTROL [Concomitant]
     Dates: start: 20010101
  5. ATENOLOL [Concomitant]
     Dates: start: 20000101
  6. SIMVASTATIN [Concomitant]
     Dates: start: 20000101
  7. LISINOPRIL [Concomitant]
  8. INSULIN [Concomitant]
  9. ASPIRIN [Concomitant]
  10. GLYBURIDE [Concomitant]

REACTIONS (3)
  - CARDIAC FAILURE CONGESTIVE [None]
  - MYOCARDIAL INFARCTION [None]
  - MYOCARDIAL ISCHAEMIA [None]
